FAERS Safety Report 21746957 (Version 1)
Quarter: 2022Q4

REPORT INFORMATION
  Report Type: Spontaneous
  Country: US (occurrence: None)
  Receive Date: 20221218
  Receipt Date: 20221218
  Transmission Date: 20230113
  Serious: No
  Sender: FDA-Public Use
  Company Number: None

PATIENT
  Age: 91 Year
  Sex: Female
  Weight: 82.5 kg

DRUGS (1)
  1. LAGEVRIO [Suspect]
     Active Substance: MOLNUPIRAVIR

REACTIONS (2)
  - Underdose [None]
  - Product dose omission in error [None]

NARRATIVE: CASE EVENT DATE: 20221217
